FAERS Safety Report 8429905-1 (Version None)
Quarter: 2012Q2

REPORT INFORMATION
  Report Type: 
  Country: None (occurrence: None)
  Receive Date: 20120612
  Receipt Date: 20120601
  Transmission Date: 20120825
  Serious: Yes (Other)
  Sender: FDA-Public Use
  Company Number: AU-VERTEX PHARMACEUTICALS INC.-000000000000000238

PATIENT
  Sex: Female
  Weight: 70 kg

DRUGS (3)
  1. PEGINTERFERON ALFA [Concomitant]
     Indication: HEPATITIS C
     Route: 058
     Dates: start: 20111117, end: 20120503
  2. INCIVO (TELAPREVIR) [Suspect]
     Indication: HEPATITIS C
     Dosage: DOSAGE FORM: TABLET
     Route: 048
     Dates: start: 20111117, end: 20120208
  3. RIBAVIRIN [Concomitant]
     Indication: HEPATITIS C
     Route: 048
     Dates: start: 20111117, end: 20120503

REACTIONS (1)
  - ANAL FISSURE [None]
